FAERS Safety Report 25764848 (Version 1)
Quarter: 2025Q3

REPORT INFORMATION
  Report Type: Spontaneous
  Country: AU (occurrence: AU)
  Receive Date: 20250905
  Receipt Date: 20250905
  Transmission Date: 20251020
  Serious: Yes (Death)
  Sender: IMMUNOCORE
  Company Number: AU-Medison-000205

PATIENT

DRUGS (1)
  1. TEBENTAFUSP [Suspect]
     Active Substance: TEBENTAFUSP
     Indication: Uveal melanoma
     Dates: start: 20240219

REACTIONS (14)
  - Death [Fatal]
  - Somnolence [Unknown]
  - Gait disturbance [Recovered/Resolved]
  - Paraesthesia [Recovered/Resolved]
  - Blister [Recovered/Resolved]
  - Skin exfoliation [Recovered/Resolved]
  - Chills [Recovered/Resolved]
  - Erythema [Recovered/Resolved]
  - Pruritus [Recovered/Resolved]
  - Pyrexia [Recovered/Resolved]
  - Arthralgia [Recovered/Resolved]
  - Hair colour changes [Unknown]
  - Drug ineffective [Unknown]
  - Product dose omission issue [Unknown]
